FAERS Safety Report 11250781 (Version 2)
Quarter: 2015Q3

REPORT INFORMATION
  Report Type: Spontaneous
  Country: US (occurrence: US)
  Receive Date: 20150708
  Receipt Date: 20150831
  Transmission Date: 20151125
  Serious: No
  Sender: FDA-Public Use
  Company Number: US-ELI_LILLY_AND_COMPANY-US201104004637

PATIENT
  Age: 43 Year
  Sex: Female

DRUGS (3)
  1. CYMBALTA [Suspect]
     Active Substance: DULOXETINE HYDROCHLORIDE
     Dosage: 60 MG, UNK
     Dates: start: 201103
  2. PROZAC [Suspect]
     Active Substance: FLUOXETINE HYDROCHLORIDE
     Dosage: UNK UNK, UNKNOWN
     Dates: end: 201103
  3. CYMBALTA [Suspect]
     Active Substance: DULOXETINE HYDROCHLORIDE
     Indication: DEPRESSION
     Dosage: 30 MG, UNK
     Dates: start: 20110308

REACTIONS (22)
  - Increased appetite [Unknown]
  - Myalgia [Unknown]
  - Abdominal distension [Unknown]
  - Vision blurred [Unknown]
  - Somnolence [Unknown]
  - Constipation [Unknown]
  - Arthralgia [Unknown]
  - Irritability [Unknown]
  - Weight increased [Unknown]
  - Dizziness [Unknown]
  - Fatigue [Unknown]
  - Mental impairment [Unknown]
  - Decreased activity [Unknown]
  - Malaise [Unknown]
  - Nausea [Not Recovered/Not Resolved]
  - Feelings of worthlessness [Unknown]
  - Halo vision [Unknown]
  - Head discomfort [Unknown]
  - Flatulence [Unknown]
  - Feeling abnormal [Unknown]
  - Depressed mood [Unknown]
  - Feeling of despair [Unknown]

NARRATIVE: CASE EVENT DATE: 201103
